FAERS Safety Report 4867976-X (Version None)
Quarter: 2005Q4

REPORT INFORMATION
  Report Type: 
  Country: None (occurrence: None)
  Receive Date: 20051227
  Receipt Date: 20051212
  Transmission Date: 20060501
  Serious: Yes (Other)
  Sender: FDA-Public Use
  Company Number: FR-JNJFOC-20050705245

PATIENT
  Age: 19 Year
  Sex: Male
  Weight: 52 kg

DRUGS (1)
  1. TOPIRAMATE [Suspect]
     Indication: EPILEPSY
     Dosage: 100 MG, 2 IN 1 DAY, ORAL
     Route: 048
     Dates: start: 20041216

REACTIONS (3)
  - FATIGUE [None]
  - HYPERBILIRUBINAEMIA [None]
  - WEIGHT DECREASED [None]
